FAERS Safety Report 8737892 (Version 2)
Quarter: 2012Q4

REPORT INFORMATION
  Report Type: Report from Study
  Country: JP (occurrence: JP)
  Receive Date: 20120823
  Receipt Date: 20121002
  Transmission Date: 20130627
  Serious: Yes (Hospitalization)
  Sender: FDA-Public Use
  Company Number: JP-009507513-1208JPN003974

PATIENT
  Age: 59 Year
  Sex: Male
  Weight: 65 kg

DRUGS (10)
  1. PEGINTRON [Suspect]
     Indication: HEPATITIS C
     Dosage: 1.5 Microgram per kilogram, qw
     Route: 058
     Dates: start: 20120604, end: 20120717
  2. REBETOL [Suspect]
     Indication: HEPATITIS C
     Dosage: 800 mg, Once
     Route: 048
     Dates: start: 20120604, end: 20120708
  3. REBETOL [Suspect]
     Dosage: 400 mg, qd
     Route: 048
     Dates: start: 20120709, end: 20120716
  4. REBETOL [Suspect]
     Dosage: 200 mg, qd
     Route: 048
     Dates: start: 20120717, end: 20120717
  5. TELAVIC [Suspect]
     Indication: HEPATITIS C
     Dosage: 2250 mg, qd
     Route: 048
     Dates: start: 20120604, end: 20120701
  6. TELAVIC [Suspect]
     Dosage: 1500 mg, qd
     Route: 048
     Dates: start: 20120702, end: 20120708
  7. TELAVIC [Suspect]
     Dosage: 750 mg, Once
     Route: 048
     Dates: start: 20120709, end: 20120716
  8. UNISIA [Concomitant]
     Indication: HYPERTENSION
     Route: 048
  9. TAKEPRON [Concomitant]
     Indication: PROPHYLAXIS
     Dosage: 15 mg, Once
     Route: 048
     Dates: start: 20120609
  10. MAGMITT [Concomitant]
     Dosage: 1980 mg, qd
     Route: 048

REACTIONS (2)
  - Anaemia [Not Recovered/Not Resolved]
  - Hyperuricaemia [Recovering/Resolving]
